FAERS Safety Report 4668464-6 (Version None)
Quarter: 2005Q3

REPORT INFORMATION
  Report Type: 
  Country: None (occurrence: None)
  Receive Date: 20050519
  Receipt Date: 20050504
  Transmission Date: 20060218
  Serious: Yes (Hospitalization)
  Sender: FDA-Public Use
  Company Number: WAES 0505USA00549

PATIENT
  Age: 29 Year
  Sex: Female

DRUGS (2)
  1. ZOCOR [Suspect]
     Indication: BLOOD CHOLESTEROL INCREASED
     Dosage: 80 MG/DAILY/PO
     Route: 048
     Dates: start: 20050314, end: 20050327
  2. TAB OMACOR 4.0 GM [Suspect]
     Indication: BLOOD TRIGLYCERIDES INCREASED
     Dosage: 4.0 GM/DAILY/PO
     Route: 048
     Dates: start: 20050314, end: 20050327

REACTIONS (1)
  - CHOLELITHIASIS OBSTRUCTIVE [None]
